FAERS Safety Report 6763982-9 (Version None)
Quarter: 2010Q2

REPORT INFORMATION
  Report Type: 
  Country: None (occurrence: None)
  Receive Date: 20100610
  Receipt Date: 20100603
  Transmission Date: 20101027
  Serious: Yes (Other)
  Sender: FDA-Public Use
  Company Number: JP-JNJFOC-20100602701

PATIENT
  Sex: Male

DRUGS (6)
  1. LOPERAMIDE HYDROCHLORIDE [Suspect]
     Indication: DRUG USE FOR UNKNOWN INDICATION
     Route: 065
  2. CAMPTOSAR [Suspect]
     Indication: SMALL CELL LUNG CANCER STAGE UNSPECIFIED
     Route: 042
  3. CISPLATIN [Suspect]
     Indication: SMALL CELL LUNG CANCER STAGE UNSPECIFIED
     Route: 017
  4. VALPROATE SODIUM [Concomitant]
  5. ELASTASE [Concomitant]
  6. RAMOSETRON HYDROCHLORIDE [Concomitant]

REACTIONS (2)
  - INTESTINAL OBSTRUCTION [None]
  - NEUTROPENIA [None]
